FAERS Safety Report 9779615 (Version 3)
Quarter: 2014Q1

REPORT INFORMATION
  Report Type: Spontaneous
  Country: FR (occurrence: FR)
  Receive Date: 20131223
  Receipt Date: 20140207
  Transmission Date: 20141002
  Serious: Yes (Death, Hospitalization)
  Sender: FDA-Public Use
  Company Number: FR-PFIZER INC-2013365380

PATIENT
  Age: 77 Year
  Sex: Male

DRUGS (7)
  1. CORDARONE [Suspect]
     Indication: ATRIAL FIBRILLATION
     Dosage: 1 DF (200 MG), DAILY
     Route: 048
     Dates: start: 201308, end: 20130918
  2. PRADAXA [Interacting]
     Indication: ATRIAL FIBRILLATION
     Dosage: 110 MG, TWICE DAILY
     Route: 048
     Dates: start: 201309, end: 20130918
  3. TEMERIT [Concomitant]
     Dosage: UNK
     Dates: start: 20130909
  4. LASIX [Concomitant]
     Dosage: UNK
  5. MOPRAL [Concomitant]
     Dosage: UNK
     Dates: start: 20130912
  6. DIFFU K [Concomitant]
     Dosage: UNK
     Dates: start: 201309
  7. INEXIUM [Concomitant]
     Dosage: UNK
     Dates: start: 201308

REACTIONS (3)
  - Drug interaction [Fatal]
  - Small intestinal haemorrhage [Fatal]
  - Anaemia [Unknown]
